FAERS Safety Report 11783427 (Version 1)
Quarter: 2015Q4

REPORT INFORMATION
  Report Type: Spontaneous
  Country: US (occurrence: US)
  Receive Date: 20151127
  Receipt Date: 20151127
  Transmission Date: 20160305
  Serious: No
  Sender: FDA-Public Use
  Company Number: US-BAYER-2015-476005

PATIENT
  Age: 67 Year
  Sex: Male
  Weight: 74.83 kg

DRUGS (3)
  1. MIRALAX [Suspect]
     Active Substance: POLYETHYLENE GLYCOL 3350
     Indication: CONSTIPATION PROPHYLAXIS
     Dosage: 1 DF, PRN
     Route: 048
     Dates: start: 2005
  2. MAG [Concomitant]
  3. FISH OIL [Concomitant]
     Active Substance: FISH OIL

REACTIONS (2)
  - Product use issue [None]
  - Abnormal faeces [None]

NARRATIVE: CASE EVENT DATE: 2005
